FAERS Safety Report 16523454 (Version 3)
Quarter: 2019Q3

REPORT INFORMATION
  Report Type: Report from Study
  Country: GB (occurrence: GB)
  Receive Date: 20190702
  Receipt Date: 20190717
  Transmission Date: 20191004
  Serious: Yes (Hospitalization)
  Sender: FDA-Public Use
  Company Number: GB-MYLANLABS-2019M1061723

PATIENT
  Age: 71 Year
  Sex: Female

DRUGS (29)
  1. TRIMETHOPRIM. [Concomitant]
     Active Substance: TRIMETHOPRIM
     Dosage: 200 MILLIGRAM, QD
     Route: 048
     Dates: start: 20180205
  2. SANDO K                            /00209301/ [Concomitant]
     Active Substance: POTASSIUM BICARBONATE\POTASSIUM CHLORIDE
     Dosage: 1 MILLIGRAM, QD
     Route: 048
     Dates: start: 20160721, end: 20160724
  3. LANSOPRAZOLE. [Concomitant]
     Active Substance: LANSOPRAZOLE
     Dosage: 30 MILLIGRAM, QD
     Route: 048
     Dates: start: 20170922
  4. AMLODIPINE [Concomitant]
     Active Substance: AMLODIPINE BESYLATE
     Dosage: 5 MILLIGRAM, QD
     Route: 048
     Dates: start: 20160725
  5. CLARITHROMYCIN. [Concomitant]
     Active Substance: CLARITHROMYCIN
     Dosage: 1000 MILLIGRAM, QD
     Route: 048
     Dates: start: 20180420
  6. FLUCONAZOLE. [Concomitant]
     Active Substance: FLUCONAZOLE
     Indication: ORAL PAIN
     Dosage: 50 MILLIGRAM, QD
     Route: 048
     Dates: start: 20180831, end: 20180907
  7. COLECALCIFEROL [Concomitant]
     Active Substance: CHOLECALCIFEROL
     Dosage: 400 MILLIGRAM, QD
     Route: 048
  8. ASPIRIN                            /00002701/ [Concomitant]
     Active Substance: ASPIRIN
     Dosage: 75 MILLIGRAM, QD
     Route: 048
  9. GABAPENTIN. [Concomitant]
     Active Substance: GABAPENTIN
     Dosage: 100 MILLIGRAM, PRN
     Route: 048
     Dates: start: 20161118
  10. TRIMETHOPRIM. [Concomitant]
     Active Substance: TRIMETHOPRIM
     Dosage: 400 MILLIGRAM, QD
     Route: 048
     Dates: start: 20180205
  11. SIMVADOR [Concomitant]
     Active Substance: SIMVASTATIN
     Dosage: 40 MILLIGRAM, QD
     Route: 048
  12. SANDO K                            /00209301/ [Concomitant]
     Active Substance: POTASSIUM BICARBONATE\POTASSIUM CHLORIDE
     Dosage: 2 MILLIGRAM, QD
     Route: 048
     Dates: start: 20160721, end: 20160724
  13. COLECALCIFEROL [Concomitant]
     Active Substance: CHOLECALCIFEROL
     Dosage: 800 MILLIGRAM, QD
     Route: 048
  14. CAPECITABINE. [Suspect]
     Active Substance: CAPECITABINE
     Indication: BREAST CANCER METASTATIC
     Dosage: 2900 MILLIGRAM, QD
     Route: 048
     Dates: start: 20160527, end: 20160916
  15. RAMIPRIL. [Concomitant]
     Active Substance: RAMIPRIL
     Dosage: 5 MILLIGRAM, QD
     Route: 048
     Dates: end: 20160721
  16. TRIMETHOPRIM. [Concomitant]
     Active Substance: TRIMETHOPRIM
     Dosage: 200 MILLIGRAM, QD
     Route: 048
     Dates: start: 20181116, end: 20181123
  17. CLARITHROMYCIN. [Concomitant]
     Active Substance: CLARITHROMYCIN
     Dosage: 500 MILLIGRAM, QD
     Route: 048
     Dates: start: 20180420
  18. AMITRIPTYLINE [Concomitant]
     Active Substance: AMITRIPTYLINE
     Indication: HEADACHE
     Dosage: 50 MILLIGRAM, QD
     Route: 048
     Dates: start: 20170922
  19. TAMOXIFEN [Suspect]
     Active Substance: TAMOXIFEN
     Indication: BREAST CANCER METASTATIC
     Dosage: 20 MILLIGRAM, QD
     Route: 048
     Dates: start: 20160316
  20. CAPECITABINE. [Suspect]
     Active Substance: CAPECITABINE
     Dosage: 1300 MILLIGRAM, Q3W
     Route: 048
     Dates: start: 20161007, end: 20161209
  21. CAPECITABINE. [Suspect]
     Active Substance: CAPECITABINE
     Dosage: 1450 MILLIGRAM, QD
     Route: 048
     Dates: start: 20160527
  22. NYSTATIN. [Concomitant]
     Active Substance: NYSTATIN
     Dosage: 1 DROP, QD
     Route: 048
     Dates: start: 20180831, end: 20180914
  23. METOCLOPRAMIDE. [Concomitant]
     Active Substance: METOCLOPRAMIDE
     Indication: NAUSEA
     Dosage: 10 MILLIGRAM, PRN
     Route: 048
     Dates: start: 20180831
  24. TRASTUZUMAB. [Suspect]
     Active Substance: TRASTUZUMAB
     Indication: BREAST CANCER METASTATIC
     Dosage: 600 MILLIGRAM, Q3W
     Route: 058
     Dates: start: 20160527
  25. CITALOPRAM [Concomitant]
     Active Substance: CITALOPRAM HYDROBROMIDE
     Indication: DEPRESSION
     Dosage: 10 MILLIGRAM, QD
     Route: 048
  26. DEXAMETHASONE. [Concomitant]
     Active Substance: DEXAMETHASONE
     Indication: HEADACHE
     Dosage: 4 MILLIGRAM, QD
     Route: 048
     Dates: start: 20170922, end: 20171006
  27. ALENDRONIC ACID [Concomitant]
     Active Substance: ALENDRONIC ACID
     Dosage: 70 MILLIGRAM, QW
     Route: 048
  28. TRIMETHOPRIM. [Concomitant]
     Active Substance: TRIMETHOPRIM
     Dosage: 400 MILLIGRAM, QD
     Route: 048
     Dates: start: 20181116, end: 20181123
  29. NYSTATIN. [Concomitant]
     Active Substance: NYSTATIN
     Indication: ORAL PAIN
     Dosage: 4 GTT DROPS, QD
     Route: 048
     Dates: start: 20180831, end: 20180914

REACTIONS (10)
  - Swollen tongue [Recovered/Resolved]
  - Lethargy [Recovered/Resolved]
  - Musculoskeletal pain [Not Recovered/Not Resolved]
  - Insomnia [Not Recovered/Not Resolved]
  - Vomiting [Recovered/Resolved]
  - Abdominal pain [Recovered/Resolved]
  - Diarrhoea [Recovered/Resolved]
  - Rash [Not Recovered/Not Resolved]
  - Back pain [Recovered/Resolved]
  - Neuropathy peripheral [Recovered/Resolved]

NARRATIVE: CASE EVENT DATE: 20160701
